FAERS Safety Report 4379578-2 (Version None)
Quarter: 2004Q2

REPORT INFORMATION
  Report Type: 
  Country: None (occurrence: None)
  Receive Date: 20040415
  Receipt Date: 20040316
  Transmission Date: 20050107
  Serious: No
  Sender: FDA-Public Use
  Company Number: 2004-03-1165

PATIENT
  Sex: Female

DRUGS (2)
  1. CLARINEX [Suspect]
     Indication: NASOPHARYNGITIS
     Dosage: 1 TABLET ORAL
     Route: 048
     Dates: start: 20040315
  2. CLARINEX [Suspect]
     Indication: SNEEZING
     Dosage: 1 TABLET ORAL
     Route: 048
     Dates: start: 20040315

REACTIONS (2)
  - HYPERSENSITIVITY [None]
  - NASAL CONGESTION [None]
